FAERS Safety Report 24325015 (Version 1)
Quarter: 2024Q3

REPORT INFORMATION
  Report Type: Spontaneous
  Country: CA (occurrence: CA)
  Receive Date: 20240916
  Receipt Date: 20240916
  Transmission Date: 20241016
  Serious: Yes (Other)
  Sender: TEVA
  Company Number: CA-TEVA-VS-3242875

PATIENT
  Age: 48 Year
  Sex: Female

DRUGS (1)
  1. DULOXETINE [Suspect]
     Active Substance: DULOXETINE
     Indication: Product used for unknown indication
     Dosage: DOSE FORM: CAPSULE, DELAYED RELEASE
     Route: 065

REACTIONS (5)
  - Nausea [Unknown]
  - Hypophagia [Unknown]
  - Hypoglycaemia [Unknown]
  - Abdominal pain [Unknown]
  - Vomiting [Unknown]
